FAERS Safety Report 5418367-4 (Version None)
Quarter: 2007Q3

REPORT INFORMATION
  Report Type: 
  Country: None (occurrence: None)
  Receive Date: 20070817
  Receipt Date: 20070726
  Transmission Date: 20080115
  Serious: Yes (Other)
  Sender: FDA-Public Use
  Company Number: HQWYE237826JUL07

PATIENT
  Sex: Female
  Weight: 65.83 kg

DRUGS (3)
  1. PREMPHASE 14/14 [Suspect]
     Indication: MENOPAUSAL SYMPTOMS
     Dosage: ONE TABLET DAILY, DOSE UNKNOWN
     Route: 048
     Dates: start: 20051228
  2. TRICOR [Concomitant]
     Indication: BLOOD CHOLESTEROL INCREASED
     Dosage: UNKNOWN
     Route: 065
  3. SYNTHROID [Concomitant]
     Indication: THYROID DISORDER
     Dosage: UNKNOWN
     Route: 048

REACTIONS (8)
  - ACNE [None]
  - ANGER [None]
  - ANXIETY [None]
  - DRY MOUTH [None]
  - PHARMACEUTICAL PRODUCT COMPLAINT [None]
  - RASH [None]
  - SUICIDAL IDEATION [None]
  - SWELLING FACE [None]
